FAERS Safety Report 24075189 (Version 3)
Quarter: 2025Q1

REPORT INFORMATION
  Report Type: Spontaneous
  Country: US (occurrence: US)
  Receive Date: 20240710
  Receipt Date: 20250121
  Transmission Date: 20250408
  Serious: No
  Sender: PFIZER
  Company Number: US-PFIZER INC-202400104214

PATIENT
  Age: 55 Year
  Sex: Female

DRUGS (2)
  1. VELSIPITY [Suspect]
     Active Substance: ETRASIMOD ARGININE
     Indication: Colitis ulcerative
  2. VELSIPITY [Suspect]
     Active Substance: ETRASIMOD ARGININE

REACTIONS (5)
  - Fluid retention [Unknown]
  - Abdominal distension [Unknown]
  - Hypertension [Unknown]
  - Hepatic enzyme increased [Unknown]
  - Dizziness [Unknown]
